FAERS Safety Report 7420179-7 (Version None)
Quarter: 2011Q2

REPORT INFORMATION
  Report Type: 
  Country: None (occurrence: None)
  Receive Date: 20110413
  Receipt Date: 20110413
  Transmission Date: 20111010
  Serious: Yes (Hospitalization)
  Sender: FDA-Public Use
  Company Number: None

PATIENT
  Sex: Female
  Weight: 56.6996 kg

DRUGS (7)
  1. RANITIDINE [Concomitant]
  2. PLAVIX [Concomitant]
  3. SINGULAIR [Suspect]
  4. KAYEXALATE [Suspect]
  5. VALTURNA [Suspect]
     Indication: BLOOD PRESSURE
     Dosage: 150MG/160MG 1X DAY
     Dates: start: 20101001, end: 20101124
  6. AMLODIPINE BESYLATE [Suspect]
  7. IPRATROPIUM BROMIDE [Concomitant]

REACTIONS (3)
  - BLOOD POTASSIUM INCREASED [None]
  - CARDIAC DISORDER [None]
  - FEELING ABNORMAL [None]
